FAERS Safety Report 15811390 (Version 1)
Quarter: 2019Q1

REPORT INFORMATION
  Report Type: Spontaneous
  Country: US (occurrence: US)
  Receive Date: 20190108
  Receipt Date: 20190108
  Transmission Date: 20190417
  Serious: No
  Sender: FDA-Public Use
  Company Number: None

PATIENT

DRUGS (1)
  1. ATOMOXETINE HCL [Suspect]
     Active Substance: ATOMOXETINE HYDROCHLORIDE

REACTIONS (8)
  - Irritability [None]
  - Product dispensing error [None]
  - Wrong product administered [None]
  - Yellow skin [None]
  - Mood swings [None]
  - Hepatic pain [None]
  - Abdominal pain upper [None]
  - Product use issue [None]

NARRATIVE: CASE EVENT DATE: 2018
